FAERS Safety Report 4462012-1 (Version None)
Quarter: 2004Q3

REPORT INFORMATION
  Report Type: 
  Country: None (occurrence: None)
  Receive Date: 20040929
  Receipt Date: 20040922
  Transmission Date: 20050211
  Serious: Yes (Hospitalization)
  Sender: FDA-Public Use
  Company Number: BE-JNJFOC-20040903196

PATIENT
  Age: 40 Year
  Sex: Female

DRUGS (2)
  1. PROPULSID [Suspect]
     Route: 049
  2. PROPULSID [Suspect]
     Route: 049

REACTIONS (3)
  - ADHESION [None]
  - GASTROINTESTINAL OBSTRUCTION [None]
  - POST PROCEDURAL COMPLICATION [None]
